FAERS Safety Report 21962099 (Version 1)
Quarter: 2023Q1

REPORT INFORMATION
  Report Type: Report from Study
  Country: US (occurrence: US)
  Receive Date: 20230207
  Receipt Date: 20230207
  Transmission Date: 20230418
  Serious: Yes (Hospitalization, Other)
  Sender: FDA-Public Use
  Company Number: US-ORG100014127-2022000627

PATIENT
  Age: 60 Year
  Sex: Male

DRUGS (9)
  1. LYSODREN [Suspect]
     Active Substance: MITOTANE
     Indication: Adrenal gland cancer
     Dosage: 01 TABLET THREE TIMES PER DAY
     Route: 048
     Dates: start: 20220412, end: 20220518
  2. METOPROLOL TARTRATE [Concomitant]
     Active Substance: METOPROLOL TARTRATE
     Indication: Product used for unknown indication
  3. GLIPIZIDE ER [Concomitant]
     Active Substance: GLIPIZIDE
     Indication: Product used for unknown indication
  4. OMEPRAZOLE [Concomitant]
     Active Substance: OMEPRAZOLE
     Indication: Product used for unknown indication
  5. DOXAZOSIN [Concomitant]
     Active Substance: DOXAZOSIN MESYLATE
     Indication: Product used for unknown indication
  6. ROSUVASTATIN [Concomitant]
     Active Substance: ROSUVASTATIN
     Indication: Product used for unknown indication
  7. Clonazepam 1 mg Tablet [Concomitant]
     Indication: Product used for unknown indication
  8. ONDANSETRON [Concomitant]
     Active Substance: ONDANSETRON
     Indication: Product used for unknown indication
  9. PREDNISONE [Concomitant]
     Active Substance: PREDNISONE
     Indication: Product used for unknown indication

REACTIONS (1)
  - Hypertensive crisis [Recovered/Resolved]

NARRATIVE: CASE EVENT DATE: 20220518
